FAERS Safety Report 7783860-6 (Version None)
Quarter: 2011Q3

REPORT INFORMATION
  Report Type: 
  Country: None (occurrence: None)
  Receive Date: 20110928
  Receipt Date: 20110923
  Transmission Date: 20111222
  Serious: Yes (Hospitalization)
  Sender: FDA-Public Use
  Company Number: US-GLAXOSMITHKLINE-A0878983A

PATIENT
  Age: 46 Year
  Sex: Female
  Weight: 84.1 kg

DRUGS (12)
  1. AMARYL [Concomitant]
  2. HUMULIN R [Concomitant]
  3. SINGULAIR [Concomitant]
  4. RELAFEN [Concomitant]
  5. ASPIRIN [Concomitant]
  6. GLUCOPHAGE [Concomitant]
  7. AVANDIA [Suspect]
     Indication: DIABETES MELLITUS
     Dosage: 4MG PER DAY
     Dates: start: 20000201
  8. VANCERIL [Concomitant]
  9. PRINIVIL [Concomitant]
  10. ACEON [Concomitant]
  11. PLAVIX [Concomitant]
  12. CLARITIN [Concomitant]

REACTIONS (2)
  - MYOCARDIAL INFARCTION [None]
  - CORONARY ARTERY DISEASE [None]
